FAERS Safety Report 9472037 (Version 1)
Quarter: 2013Q3

REPORT INFORMATION
  Report Type: Spontaneous
  Country: US (occurrence: US)
  Receive Date: 20130823
  Receipt Date: 20130823
  Transmission Date: 20140515
  Serious: No
  Sender: FDA-Public Use
  Company Number: US-BIOGENIDEC-2013BI075505

PATIENT
  Age: 67 Year
  Sex: Female

DRUGS (6)
  1. AVONEX [Suspect]
     Indication: MULTIPLE SCLEROSIS
     Route: 030
     Dates: start: 20120718, end: 20120725
  2. AVONEX [Suspect]
     Indication: MULTIPLE SCLEROSIS
     Route: 030
     Dates: start: 20120829, end: 201211
  3. AVONEX [Suspect]
     Indication: MULTIPLE SCLEROSIS
     Route: 030
     Dates: start: 201211
  4. ATENOLOL [Concomitant]
     Indication: HYPERTENSION
     Dates: start: 1990
  5. LOSARTAN [Concomitant]
     Indication: HYPERTENSION
     Dates: start: 1990
  6. NIFEDICAL XL [Concomitant]
     Indication: HYPERTENSION
     Dates: start: 1990

REACTIONS (1)
  - Injection site haemorrhage [Recovered/Resolved]
